FAERS Safety Report 17664505 (Version 1)
Quarter: 2020Q2

REPORT INFORMATION
  Report Type: Spontaneous
  Country: IT (occurrence: IT)
  Receive Date: 20200414
  Receipt Date: 20200414
  Transmission Date: 20200713
  Serious: Yes (Death, Life-Threatening, Hospitalization, Other)
  Sender: FDA-Public Use
  Company Number: IT-LUPIN PHARMACEUTICALS INC.-2020-01653

PATIENT
  Age: 39 Year
  Sex: Female

DRUGS (3)
  1. LAMOTRIGINE. [Suspect]
     Active Substance: LAMOTRIGINE
     Indication: BIPOLAR DISORDER
     Dosage: 25 MILLIGRAM, BID
     Route: 048
  2. PALIPERIDONE PALMITATE [Suspect]
     Active Substance: PALIPERIDONE PALMITATE
     Indication: BIPOLAR DISORDER
     Dosage: 100 MILLIGRAM (EXTENDED-RELEASE INJECTABLE SUSPENSION, EVERY 4 WEEKS)
     Route: 030
  3. CLONAZEPAM. [Concomitant]
     Active Substance: CLONAZEPAM
     Indication: BIPOLAR DISORDER
     Dosage: 1 MILLIGRAM, TID
     Route: 048

REACTIONS (7)
  - Hypothermia [Unknown]
  - Brain herniation [Fatal]
  - Cardiac arrest [Fatal]
  - Coma [Fatal]
  - Hypotension [Fatal]
  - Brain oedema [Fatal]
  - Inappropriate antidiuretic hormone secretion [Fatal]
